FAERS Safety Report 20710627 (Version 2)
Quarter: 2022Q2

REPORT INFORMATION
  Report Type: Spontaneous
  Country: JP (occurrence: JP)
  Receive Date: 20220414
  Receipt Date: 20220426
  Transmission Date: 20220721
  Serious: Yes (Death)
  Sender: FDA-Public Use
  Company Number: JP-PFIZER INC-202200561250

PATIENT
  Sex: Male

DRUGS (1)
  1. LYRICA [Interacting]
     Active Substance: PREGABALIN
     Dosage: 20 DF
     Route: 048

REACTIONS (2)
  - Drug abuse [Fatal]
  - Alcohol interaction [Fatal]
